FAERS Safety Report 21376335 (Version 1)
Quarter: 2022Q3

REPORT INFORMATION
  Report Type: Spontaneous
  Country: CN (occurrence: CN)
  Receive Date: 20220926
  Receipt Date: 20220926
  Transmission Date: 20221027
  Serious: Yes (Other)
  Sender: FDA-Public Use
  Company Number: CN-PFIZER INC-PV202200063098

PATIENT
  Age: 41 Year
  Sex: Male

DRUGS (4)
  1. SOLU-MEDROL [Suspect]
     Active Substance: METHYLPREDNISOLONE SODIUM SUCCINATE
     Dosage: 40MG, D1 - 4, Q14D, FOR 5 CYCLES
  2. CISPLATIN [Suspect]
     Active Substance: CISPLATIN
     Dosage: 40 MG, D1, FOR 5 CYCLES
  3. CISPLATIN [Suspect]
     Active Substance: CISPLATIN
     Dosage: 50 MG, D2, FOR 5 CYCLES
  4. GEMCITABINE [Suspect]
     Active Substance: GEMCITABINE
     Dosage: 1.8 G, D1, FOR 5 CYCLES

REACTIONS (1)
  - Myelosuppression [Unknown]
